FAERS Safety Report 13656513 (Version 1)
Quarter: 2017Q2

REPORT INFORMATION
  Report Type: Spontaneous
  Country: US (occurrence: US)
  Receive Date: 20170615
  Receipt Date: 20170615
  Transmission Date: 20170830
  Serious: Yes (Other)
  Sender: FDA-Public Use
  Company Number: None

PATIENT
  Age: 47 Year
  Sex: Male
  Weight: 90.8 kg

DRUGS (4)
  1. SPR. LOSARTAN [Concomitant]
  2. ENTRESTO [Suspect]
     Active Substance: SACUBITRIL\VALSARTAN
     Indication: CARDIAC FAILURE
     Dosage: 1 PILL 2 TIMES, MOUTH
     Route: 048
     Dates: start: 20170420, end: 20170430
  3. BUMETANIDE. [Concomitant]
     Active Substance: BUMETANIDE
  4. CARVADIOL [Concomitant]

REACTIONS (5)
  - Discomfort [None]
  - Feeling abnormal [None]
  - Renal haemorrhage [None]
  - Haematochezia [None]
  - Abdominal pain upper [None]

NARRATIVE: CASE EVENT DATE: 20170420
